FAERS Safety Report 19447832 (Version 1)
Quarter: 2021Q2

REPORT INFORMATION
  Report Type: Spontaneous
  Country: US (occurrence: US)
  Receive Date: 20210622
  Receipt Date: 20210622
  Transmission Date: 20210717
  Serious: No
  Sender: FDA-Public Use
  Company Number: US-TEVA-2021-US-1922898

PATIENT
  Sex: Female

DRUGS (1)
  1. CINQAIR [Suspect]
     Active Substance: RESLIZUMAB
     Indication: ASTHMA
     Route: 042
     Dates: start: 20200710

REACTIONS (5)
  - Asthma [Not Recovered/Not Resolved]
  - Formication [Unknown]
  - Throat irritation [Unknown]
  - Drug ineffective [Unknown]
  - Pruritus [Unknown]
